FAERS Safety Report 5685268-6 (Version None)
Quarter: 2008Q1

REPORT INFORMATION
  Report Type: 
  Country: None (occurrence: None)
  Receive Date: 20080328
  Receipt Date: 20080321
  Transmission Date: 20080703
  Serious: Yes (Hospitalization)
  Sender: FDA-Public Use
  Company Number: US-GENENTECH-256541

PATIENT
  Sex: Female
  Weight: 99.79 kg

DRUGS (1)
  1. OMALIZUMAB [Suspect]
     Indication: ASTHMA
     Dosage: UNK, Q2W
     Route: 065
     Dates: start: 20070226

REACTIONS (2)
  - ASTHMA [None]
  - CONDITION AGGRAVATED [None]
